FAERS Safety Report 11457371 (Version 2)
Quarter: 2015Q4

REPORT INFORMATION
  Report Type: Report from Study
  Country: US (occurrence: US)
  Receive Date: 20150904
  Receipt Date: 20151225
  Transmission Date: 20160304
  Serious: Yes (Other)
  Sender: FDA-Public Use
  Company Number: US-ABBVIE-15P-163-1454925-00

PATIENT
  Age: 65 Year
  Sex: Female
  Weight: 49.94 kg

DRUGS (6)
  1. HUMIRA [Suspect]
     Active Substance: ADALIMUMAB
     Indication: RHEUMATOID ARTHRITIS
     Route: 065
     Dates: start: 20080619, end: 20150730
  2. IRON [Concomitant]
     Active Substance: IRON
     Indication: ANAEMIA
  3. VITAMIN D [Concomitant]
     Active Substance: CHOLECALCIFEROL
     Indication: PRODUCT USED FOR UNKNOWN INDICATION
  4. HYDROCODONE [Concomitant]
     Active Substance: HYDROCODONE
     Indication: PAIN
  5. PREDNISONE. [Concomitant]
     Active Substance: PREDNISONE
     Indication: PRODUCT USED FOR UNKNOWN INDICATION
  6. ANTIVERT [Concomitant]
     Active Substance: MECLIZINE HYDROCHLORIDE
     Indication: VERTIGO

REACTIONS (6)
  - Suture related complication [Recovered/Resolved]
  - Hypersensitivity [Recovered/Resolved]
  - Ligament disorder [Recovering/Resolving]
  - Synovial disorder [Recovering/Resolving]
  - Bone disorder [Recovering/Resolving]
  - Exostosis [Recovering/Resolving]

NARRATIVE: CASE EVENT DATE: 201509
